FAERS Safety Report 6871103-7 (Version None)
Quarter: 2010Q3

REPORT INFORMATION
  Report Type: 
  Country: None (occurrence: None)
  Receive Date: 20100723
  Receipt Date: 20100712
  Transmission Date: 20110219
  Serious: Yes (Disabling, Other)
  Sender: FDA-Public Use
  Company Number: US-ELI_LILLY_AND_COMPANY-US201007003442

PATIENT
  Sex: Female
  Weight: 68.027 kg

DRUGS (11)
  1. EFFIENT [Suspect]
     Indication: PERCUTANEOUS CORONARY INTERVENTION
     Dosage: 60 MG, OTHER
     Dates: start: 20100601
  2. EFFIENT [Suspect]
     Dosage: 10 MG, DAILY (1/D)
     Dates: start: 20100601, end: 20100702
  3. NOVOLOG [Concomitant]
  4. LANTUS [Concomitant]
  5. LISINOPRIL [Concomitant]
  6. ZOCOR [Concomitant]
  7. COREG [Concomitant]
  8. ESTRING [Concomitant]
  9. REGLAN [Concomitant]
  10. XANAX [Concomitant]
  11. ASPIRIN [Concomitant]
     Dosage: 325 MG, UNKNOWN

REACTIONS (2)
  - BLINDNESS [None]
  - EYE HAEMORRHAGE [None]
